FAERS Safety Report 6065950-1 (Version None)
Quarter: 2009Q1

REPORT INFORMATION
  Report Type: 
  Country: None (occurrence: None)
  Receive Date: 20090205
  Receipt Date: 20090129
  Transmission Date: 20090719
  Serious: Yes (Other)
  Sender: FDA-Public Use
  Company Number: US-BRISTOL-MYERS SQUIBB COMPANY-14487680

PATIENT
  Age: 56 Year
  Sex: Female
  Weight: 45 kg

DRUGS (6)
  1. ORENCIA [Suspect]
     Indication: RHEUMATOID ARTHRITIS
  2. METFORMIN [Concomitant]
  3. LISINOPRIL [Concomitant]
  4. LOVASTATIN [Concomitant]
  5. FOLIC ACID [Concomitant]
  6. ARAVA [Concomitant]

REACTIONS (4)
  - FOOT FRACTURE [None]
  - IMPAIRED HEALING [None]
  - LIGAMENT RUPTURE [None]
  - TENDON RUPTURE [None]
